FAERS Safety Report 8173896-8 (Version None)
Quarter: 2012Q1

REPORT INFORMATION
  Report Type: 
  Country: None (occurrence: None)
  Receive Date: 20120229
  Receipt Date: 20120216
  Transmission Date: 20120608
  Serious: Yes (Life-Threatening)
  Sender: FDA-Public Use
  Company Number: GB-ELI_LILLY_AND_COMPANY-GB201202004800

PATIENT
  Age: 54 Year
  Sex: Male
  Weight: 80 kg

DRUGS (7)
  1. OLANZAPINE [Suspect]
     Indication: MENTAL DISORDER
     Dosage: 15 MG, UNKNOWN
     Route: 048
     Dates: end: 20120201
  2. TRAMADOL HCL [Concomitant]
     Indication: PAIN
     Dosage: 50 MG, UNKNOWN
     Route: 048
  3. THIAMINE HCL [Concomitant]
     Indication: ALCOHOLISM
     Dosage: UNK UNK, UNKNOWN
     Route: 048
  4. VITAMIN B NOS [Concomitant]
     Indication: ALCOHOLISM
     Dosage: UNK, UNKNOWN
     Route: 048
  5. OMEPRAZOLE [Concomitant]
     Indication: GASTROOESOPHAGEAL REFLUX DISEASE
     Dosage: 20 MG, UNKNOWN
     Route: 048
  6. CITALOPRAM HYDROBROMIDE [Concomitant]
     Indication: DEPRESSION
     Dosage: 20 MG, UNKNOWN
     Route: 048
  7. DOMPERIDONE [Concomitant]
     Indication: ANTIEMETIC SUPPORTIVE CARE
     Dosage: 2 DF, UNKNOWN
     Route: 048

REACTIONS (2)
  - VENTRICULAR TACHYCARDIA [None]
  - VENTRICULAR FIBRILLATION [None]
